FAERS Safety Report 5711458-X (Version None)
Quarter: 2008Q2

REPORT INFORMATION
  Report Type: 
  Country: None (occurrence: None)
  Receive Date: 20080421
  Receipt Date: 20080410
  Transmission Date: 20081010
  Serious: Yes (Other)
  Sender: FDA-Public Use
  Company Number: MY-MERCK-0804MYS00008

PATIENT
  Age: 40 Year
  Sex: Female

DRUGS (1)
  1. FOSAMAX [Suspect]
     Indication: OSTEOPOROSIS
     Route: 048
     Dates: start: 20070613, end: 20070613

REACTIONS (5)
  - DIARRHOEA [None]
  - DYSPEPSIA [None]
  - LETHARGY [None]
  - RENAL FAILURE ACUTE [None]
  - VOMITING [None]
